FAERS Safety Report 14562834 (Version 1)
Quarter: 2018Q1

REPORT INFORMATION
  Report Type: Spontaneous
  Country: JP (occurrence: JP)
  Receive Date: 20180222
  Receipt Date: 20180222
  Transmission Date: 20180509
  Serious: Yes (Hospitalization)
  Sender: FDA-Public Use
  Company Number: JP-ASTRAZENECA-2018SE21292

PATIENT
  Age: 73 Year
  Sex: Male

DRUGS (2)
  1. SULPIRIDE [Concomitant]
     Active Substance: SULPIRIDE
     Dosage: 50.0% UNKNOWN
     Route: 048
  2. CRESTOR [Suspect]
     Active Substance: ROSUVASTATIN CALCIUM
     Dosage: 1.0MG UNKNOWN
     Route: 048

REACTIONS (10)
  - Hyperthermia [Recovered/Resolved]
  - Postural reflex impairment [Recovering/Resolving]
  - Fall [Unknown]
  - Parkinsonism [Recovering/Resolving]
  - Blood creatine phosphokinase increased [Recovering/Resolving]
  - Dysarthria [Unknown]
  - Neuroleptic malignant syndrome [Recovering/Resolving]
  - Gait disturbance [Recovering/Resolving]
  - Musculoskeletal stiffness [Unknown]
  - Blood urine present [Unknown]
